FAERS Safety Report 9643692 (Version 1)
Quarter: 2013Q4

REPORT INFORMATION
  Report Type: Report from Study
  Country: US (occurrence: US)
  Receive Date: 20131024
  Receipt Date: 20131024
  Transmission Date: 20140711
  Serious: Yes (Hospitalization)
  Sender: FDA-Public Use
  Company Number: US-BRISTOL-MYERS SQUIBB COMPANY-19573765

PATIENT
  Age: 69 Year
  Sex: Male
  Weight: 75.4 kg

DRUGS (1)
  1. IPILIMUMAB [Suspect]
     Indication: MALIGNANT MELANOMA
     Dosage: LAST DOSE:13AUG13.?TOTAL DOSE:772MG?Q3 WEEKS X 4 DOSES?Q12 WEEKS ON WEEKS 24,36,48,60.
     Route: 042
     Dates: start: 20130610

REACTIONS (2)
  - Colitis [Recovering/Resolving]
  - Hypomagnesaemia [Recovering/Resolving]
